FAERS Safety Report 24259182 (Version 1)
Quarter: 2024Q3

REPORT INFORMATION
  Report Type: Spontaneous
  Country: US (occurrence: US)
  Receive Date: 20240828
  Receipt Date: 20240828
  Transmission Date: 20241016
  Serious: No
  Sender: BRECKENRIDGE
  Company Number: US-Breckenridge Pharmaceutical, Inc.-2160948

PATIENT
  Age: 32 Year
  Sex: Male
  Weight: 68.182 kg

DRUGS (6)
  1. TERBINAFINE HYDROCHLORIDE [Suspect]
     Active Substance: TERBINAFINE HYDROCHLORIDE
     Indication: Onychomycosis
     Route: 048
  2. KETOCONAZOLE [Concomitant]
     Active Substance: KETOCONAZOLE
     Route: 061
  3. Methylated B12 [Concomitant]
     Route: 048
  4. OREGANO [Suspect]
     Active Substance: OREGANO
     Route: 048
  5. CHLORHEXIDINE GLUCONATE [Concomitant]
     Active Substance: CHLORHEXIDINE GLUCONATE
     Route: 061
  6. BENZOYL PEROXIDE [Concomitant]
     Active Substance: BENZOYL PEROXIDE
     Route: 061

REACTIONS (3)
  - Therapeutic product ineffective [Not Recovered/Not Resolved]
  - Skin odour abnormal [Unknown]
  - Skin lesion [Not Recovered/Not Resolved]
